FAERS Safety Report 13532688 (Version 1)
Quarter: 2017Q2

REPORT INFORMATION
  Report Type: Spontaneous
  Country: US (occurrence: US)
  Receive Date: 20170510
  Receipt Date: 20170510
  Transmission Date: 20170830
  Serious: No
  Sender: FDA-Public Use
  Company Number: US-PERRIGO-16US019617

PATIENT
  Age: 73 Year
  Sex: Female
  Weight: 65.76 kg

DRUGS (3)
  1. FAMOTIDINE. [Suspect]
     Active Substance: FAMOTIDINE
     Indication: DYSPEPSIA
     Dosage: 10 MG, QD, PRN
     Route: 048
     Dates: start: 2015, end: 20160830
  2. FAMOTIDINE. [Suspect]
     Active Substance: FAMOTIDINE
     Indication: ABDOMINAL PAIN UPPER
  3. FAMOTIDINE. [Suspect]
     Active Substance: FAMOTIDINE
     Indication: FLATULENCE

REACTIONS (3)
  - Drug ineffective for unapproved indication [Unknown]
  - Expired product administered [Recovered/Resolved]
  - Off label use [Recovered/Resolved]

NARRATIVE: CASE EVENT DATE: 20160101
